FAERS Safety Report 25161260 (Version 1)
Quarter: 2025Q2

REPORT INFORMATION
  Report Type: Spontaneous
  Country: US (occurrence: US)
  Receive Date: 20250404
  Receipt Date: 20250404
  Transmission Date: 20250717
  Serious: No
  Sender: PFIZER
  Company Number: US-PFIZER INC-202500071323

PATIENT
  Age: 62 Year
  Sex: Female

DRUGS (12)
  1. XELJANZ XR [Suspect]
     Active Substance: TOFACITINIB CITRATE
     Dosage: 11 MG, 1X/DAY
     Route: 048
     Dates: start: 20250318
  2. DIPHENHYDRAMINE HYDROCHLORIDE [Concomitant]
     Active Substance: DIPHENHYDRAMINE HYDROCHLORIDE
  3. MULTI VITAMIN [ASCORBIC ACID;FOLIC ACID;NICOTINIC ACID;PYRIDOXINE HYDR [Concomitant]
     Dosage: UNK, DAILY
  4. TYLENOL [Concomitant]
     Active Substance: ACETAMINOPHEN
  5. ADVIL [Concomitant]
     Active Substance: IBUPROFEN
  6. CIALIS [Concomitant]
     Active Substance: TADALAFIL
  7. SYNTHROID [Concomitant]
     Active Substance: LEVOTHYROXINE SODIUM
  8. HYDROXYCHLOROQUINE SULFATE [Concomitant]
     Active Substance: HYDROXYCHLOROQUINE SULFATE
  9. FOLIC ACID [Concomitant]
     Active Substance: FOLIC ACID
  10. MELOXICAM [Concomitant]
     Active Substance: MELOXICAM
  11. GABAPENTIN [Concomitant]
     Active Substance: GABAPENTIN
  12. ALFUZOSIN HYDROCHLORIDE [Concomitant]
     Active Substance: ALFUZOSIN HYDROCHLORIDE

REACTIONS (1)
  - Pain [Not Recovered/Not Resolved]

NARRATIVE: CASE EVENT DATE: 20250301
